FAERS Safety Report 20829967 (Version 1)
Quarter: 2022Q2

REPORT INFORMATION
  Report Type: Spontaneous
  Country: IS (occurrence: IS)
  Receive Date: 20220514
  Receipt Date: 20220514
  Transmission Date: 20220721
  Serious: Yes (Hospitalization)
  Sender: FDA-Public Use
  Company Number: None

PATIENT
  Sex: Male

DRUGS (3)
  1. GEMCITABINE [Suspect]
     Active Substance: GEMCITABINE
     Indication: B-cell lymphoma
     Dosage: 2000 MG IV
     Route: 042
     Dates: start: 20220219
  2. BORTEZOMIB [Suspect]
     Active Substance: BORTEZOMIB
     Indication: B-cell lymphoma
     Dosage: STRENGTH : 3.5 MG
     Dates: start: 20220221
  3. LENALIDOMIDE [Suspect]
     Active Substance: LENALIDOMIDE
     Indication: B-cell lymphoma
     Dosage: 1 DOSAGE FORMS DAILY; 1 CAPSULE DAILY FOR 21 DAYS (28 DAYS BETWEEN TREATMENT)
     Dates: start: 20220325

REACTIONS (2)
  - Clostridium difficile colitis [Not Recovered/Not Resolved]
  - Diarrhoea [Not Recovered/Not Resolved]

NARRATIVE: CASE EVENT DATE: 20210407
